FAERS Safety Report 21645620 (Version 6)
Quarter: 2023Q2

REPORT INFORMATION
  Report Type: Report from Study
  Country: US (occurrence: US)
  Receive Date: 20221126
  Receipt Date: 20230406
  Transmission Date: 20230721
  Serious: Yes (Other)
  Sender: FDA-Public Use
  Company Number: US-ABBVIE-4214550

PATIENT
  Sex: Male

DRUGS (3)
  1. VENCLEXTA [Suspect]
     Active Substance: VENETOCLAX
     Indication: Chronic lymphocytic leukaemia
     Route: 048
     Dates: start: 20221115
  2. VENCLEXTA [Suspect]
     Active Substance: VENETOCLAX
     Indication: Chronic lymphocytic leukaemia
     Dosage: DECREASED DOSE
     Route: 048
  3. LASIX [Suspect]
     Active Substance: FUROSEMIDE
     Indication: Product used for unknown indication
     Route: 065

REACTIONS (14)
  - Cardiac failure congestive [Unknown]
  - Pain [Unknown]
  - Unevaluable event [Unknown]
  - Asthenia [Unknown]
  - Blood uric acid abnormal [Unknown]
  - Cough [Unknown]
  - Irritability [Unknown]
  - Pollakiuria [Unknown]
  - Mobility decreased [Unknown]
  - Urinary incontinence [Unknown]
  - Fatigue [Unknown]
  - Peripheral swelling [Unknown]
  - Alcohol use [Unknown]
  - Fatigue [Unknown]
